FAERS Safety Report 4527062-5 (Version None)
Quarter: 2004Q4

REPORT INFORMATION
  Report Type: 
  Country: None (occurrence: None)
  Receive Date: 20041213
  Receipt Date: 20041125
  Transmission Date: 20050328
  Serious: Yes (Other)
  Sender: FDA-Public Use
  Company Number: 2004104775

PATIENT
  Age: 44 Year
  Sex: Male

DRUGS (1)
  1. VIAGRA [Suspect]
     Indication: ILL-DEFINED DISORDER
     Dosage: 50 MG, ORAL
     Route: 048
     Dates: start: 20040601, end: 20040101

REACTIONS (4)
  - EYE REDNESS [None]
  - FLUSHING [None]
  - OCULAR HYPERAEMIA [None]
  - ROSACEA [None]
